FAERS Safety Report 5099600-8 (Version None)
Quarter: 2006Q3

REPORT INFORMATION
  Report Type: 
  Country: None (occurrence: None)
  Receive Date: 20060906
  Receipt Date: 20060823
  Transmission Date: 20061208
  Serious: Yes (Hospitalization)
  Sender: FDA-Public Use
  Company Number: CLOF-10277

PATIENT
  Age: 33 Year
  Sex: Female

DRUGS (27)
  1. CLOFARABINE [Suspect]
     Indication: MYELOID LEUKAEMIA
     Dosage: 20 MG/M2 QD X 3 IV
     Route: 042
     Dates: start: 20060523, end: 20060525
  2. CLOFARABINE [Suspect]
     Indication: MYELOID LEUKAEMIA
     Dosage: 20 MG/M2 QD X 3 IV
     Route: 042
     Dates: start: 20060531, end: 20060602
  3. CYCLOPHOSPHAMIDE [Suspect]
     Indication: MYELOID LEUKAEMIA
     Dosage: 400 MG/M2 QD X 3 IV
     Route: 042
     Dates: start: 20060523, end: 20060525
  4. CYCLOPHOSPHAMIDE [Suspect]
     Indication: MYELOID LEUKAEMIA
     Dosage: 400 MG/M2 QD X 3 IV
     Route: 042
     Dates: start: 20060531, end: 20060602
  5. VANCOMYCIN [Suspect]
     Indication: DRUG USE FOR UNKNOWN INDICATION
     Dates: start: 20060525, end: 20060531
  6. VORICONAZOLE [Suspect]
     Indication: DRUG USE FOR UNKNOWN INDICATION
     Dates: start: 20060101, end: 20060101
  7. ACETAMINOPHEN [Concomitant]
  8. ALLOPURINOL [Concomitant]
  9. HYDROCORTISONE [Concomitant]
  10. ZOSYN [Concomitant]
  11. DAPSONE [Concomitant]
  12. CLINDAMYCIN [Concomitant]
  13. ARA-C [Concomitant]
  14. BENADRYL [Concomitant]
  15. AMBISOME [Concomitant]
  16. CIPROFLAXACIN [Concomitant]
  17. AZTREONAM [Concomitant]
  18. PROTONIX [Concomitant]
  19. FENTANYL [Concomitant]
  20. ATIVAN [Concomitant]
  21. MEROPENEM [Concomitant]
  22. BACTRIM [Concomitant]
  23. ACYCLOVIR [Concomitant]
  24. ZOLOFT [Concomitant]
  25. TOPROL-XL [Concomitant]
  26. K-DUR 10 [Concomitant]
  27. COLACE [Concomitant]

REACTIONS (22)
  - ABDOMINAL PAIN [None]
  - ABDOMINAL PAIN UPPER [None]
  - ALPHA HAEMOLYTIC STREPTOCOCCAL INFECTION [None]
  - BLOOD CULTURE POSITIVE [None]
  - BONE MARROW TRANSPLANT [None]
  - CONSTIPATION [None]
  - DRUG ERUPTION [None]
  - FAECALOMA [None]
  - FATIGUE [None]
  - FEBRILE NEUTROPENIA [None]
  - FUNGAL RASH [None]
  - GASTROOESOPHAGEAL REFLUX DISEASE [None]
  - HEADACHE [None]
  - HEPATIC ENZYME INCREASED [None]
  - NAUSEA [None]
  - PLEURITIC PAIN [None]
  - PNEUMONIA [None]
  - PNEUMONIA FUNGAL [None]
  - RASH ERYTHEMATOUS [None]
  - RETINAL HAEMORRHAGE [None]
  - STAPHYLOCOCCAL INFECTION [None]
  - VOMITING [None]
